FAERS Safety Report 6590528-0 (Version None)
Quarter: 2010Q1

REPORT INFORMATION
  Report Type: 
  Country: None (occurrence: None)
  Receive Date: 20100219
  Receipt Date: 20100212
  Transmission Date: 20100710
  Serious: Yes (Other)
  Sender: FDA-Public Use
  Company Number: JP-GENENTECH-298092

PATIENT
  Age: 62 Year
  Sex: Male

DRUGS (6)
  1. RITUXIMAB [Suspect]
     Indication: NON-HODGKIN'S LYMPHOMA
     Dosage: 250 MG/M2, SINGLE
     Route: 042
     Dates: start: 20090408
  2. INDIUM-111 IBRITUMOMAB TIUXETAN [Suspect]
     Indication: B-CELL LYMPHOMA
     Dosage: 130 MBQ, SINGLE
     Route: 042
     Dates: start: 20090408
  3. YTTRIUM-90 IBRITUMOMAB TIUXETAN [Suspect]
     Indication: B-CELL LYMPHOMA
     Dosage: 14.8 UNK, SINGLE
     Route: 042
     Dates: start: 20090415
  4. CALONAL [Concomitant]
     Indication: PROPHYLAXIS
     Dosage: 400 MG, QD
     Route: 048
     Dates: start: 20090408, end: 20090415
  5. CHLOR-TRIMETON [Concomitant]
     Indication: PROPHYLAXIS
     Dosage: 10 MG, QD
     Route: 048
     Dates: start: 20090408, end: 20090415
  6. BAKTAR [Concomitant]
     Indication: PROPHYLAXIS
     Dosage: 4 TABLET, UNK
     Route: 048
     Dates: start: 20090507, end: 20090624

REACTIONS (1)
  - BONE MARROW FAILURE [None]
